FAERS Safety Report 19171614 (Version 1)
Quarter: 2021Q2

REPORT INFORMATION
  Report Type: Spontaneous
  Country: GB (occurrence: GB)
  Receive Date: 20210423
  Receipt Date: 20210423
  Transmission Date: 20210717
  Serious: Yes (Hospitalization, Other)
  Sender: FDA-Public Use
  Company Number: GB-SA-2021SA133169

PATIENT
  Age: 80 Year
  Sex: Male

DRUGS (10)
  1. OZEMPIC [Concomitant]
     Active Substance: SEMAGLUTIDE
  2. ASPIRIN. [Concomitant]
     Active Substance: ASPIRIN
  3. LANSOPRAZOLE. [Concomitant]
     Active Substance: LANSOPRAZOLE
  4. AZITHROMYCIN ANHYDROUS. [Concomitant]
     Active Substance: AZITHROMYCIN ANHYDROUS
  5. GTN [Concomitant]
     Active Substance: NITROGLYCERIN
     Dosage: SPRAY
  6. LISINOPRIL. [Concomitant]
     Active Substance: LISINOPRIL
  7. MONTELUKAST SODIUM. [Concomitant]
     Active Substance: MONTELUKAST SODIUM
  8. ATORVASTATIN [Concomitant]
     Active Substance: ATORVASTATIN
  9. DUPILUMAB [Suspect]
     Active Substance: DUPILUMAB
     Indication: DERMATITIS ALLERGIC
     Dosage: 300 MG
     Route: 058
     Dates: start: 202101
  10. METFORMIN [Concomitant]
     Active Substance: METFORMIN HYDROCHLORIDE

REACTIONS (2)
  - Cerebral haemorrhage [Unknown]
  - Brain stem stroke [Recovered/Resolved with Sequelae]

NARRATIVE: CASE EVENT DATE: 202102
